FAERS Safety Report 4462328-9 (Version None)
Quarter: 2004Q3

REPORT INFORMATION
  Report Type: 
  Country: None (occurrence: None)
  Receive Date: 20040924
  Receipt Date: 20040915
  Transmission Date: 20050211
  Serious: Yes (Hospitalization)
  Sender: FDA-Public Use
  Company Number: 0400025EN0020P

PATIENT
  Age: 4 Year
  Sex: Male
  Weight: 11 kg

DRUGS (5)
  1. ONCASPAR [Suspect]
     Indication: ACUTE LYMPHOCYTIC LEUKAEMIA
     Dosage: 1300-1425 IU IM
     Route: 031
     Dates: start: 20040510, end: 20040706
  2. DEXAMETHASONE [Concomitant]
  3. THIOGUANINE [Concomitant]
  4. CYTOXAN [Concomitant]
  5. ARA-C [Concomitant]

REACTIONS (4)
  - ABDOMINAL DISTENSION [None]
  - CLOSTRIDIAL INFECTION [None]
  - IRRITABILITY [None]
  - VOMITING [None]
